FAERS Safety Report 8170362-0 (Version None)
Quarter: 2012Q1

REPORT INFORMATION
  Report Type: 
  Country: None (occurrence: None)
  Receive Date: 20120105
  Receipt Date: 20101213
  Transmission Date: 20120608
  Serious: Yes (Other)
  Sender: FDA-Public Use
  Company Number: JHP201000374

PATIENT
  Age: 15 Year
  Sex: Female

DRUGS (2)
  1. APLISOL [Suspect]
     Indication: TUBERCULIN TEST
     Dosage: 0.1 ML, SINGLE, INTRADERMAL
     Route: 023
     Dates: start: 20101213, end: 20101213
  2. APLISOL [Suspect]
     Indication: TUBERCULIN TEST
     Dosage: 0.1 ML, SINGLE, INTRADERMAL
     Route: 023
     Dates: start: 20101203, end: 20101203

REACTIONS (1)
  - HYPERSENSITIVITY [None]
